FAERS Safety Report 4661696-2 (Version None)
Quarter: 2005Q2

REPORT INFORMATION
  Report Type: 
  Country: None (occurrence: None)
  Receive Date: 20050511
  Receipt Date: 20050511
  Transmission Date: 20051028
  Serious: Yes (Hospitalization)
  Sender: FDA-Public Use
  Company Number: None

PATIENT
  Age: 79 Year
  Sex: Male

DRUGS (4)
  1. LISINOPRIL [Suspect]
     Indication: HYPERTENSION
     Dosage: 20 MG BID
     Dates: start: 20040701
  2. FUROSEMIDE [Suspect]
     Indication: HYPERTENSION
     Dosage: 40 MG Q AM AND 20 MG Q PM
     Dates: start: 20040701
  3. ASPIRIN [Concomitant]
  4. FESO4 [Concomitant]

REACTIONS (1)
  - RENAL FAILURE ACUTE [None]
